FAERS Safety Report 8484367-3 (Version None)
Quarter: 2012Q3

REPORT INFORMATION
  Report Type: 
  Country: None (occurrence: None)
  Receive Date: 20120703
  Receipt Date: 20120627
  Transmission Date: 20120928
  Serious: Yes (Disabling)
  Sender: FDA-Public Use
  Company Number: PHFR2012GB002746

PATIENT
  Sex: Female
  Weight: 68.5 kg

DRUGS (4)
  1. DEPAKOTE [Concomitant]
     Dosage: 750 MG, (250 MG MANE, 500 MG NOCTE)
     Route: 048
  2. SERTRALINE HYDROCHLORIDE [Concomitant]
     Dosage: 50 MG, UNK
     Route: 048
  3. METHADONE HCL [Concomitant]
     Dosage: 75 MG, DAILY
     Route: 048
  4. CLOZARIL [Suspect]
     Indication: SCHIZOPHRENIA
     Dosage: 300 MG, DAILY
     Route: 048
     Dates: start: 20110411, end: 20110517

REACTIONS (3)
  - DRY EYE [None]
  - ANXIETY [None]
  - HYPERHIDROSIS [None]
